FAERS Safety Report 7399942-7 (Version None)
Quarter: 2011Q2

REPORT INFORMATION
  Report Type: 
  Country: None (occurrence: None)
  Receive Date: 20110407
  Receipt Date: 20110330
  Transmission Date: 20111010
  Serious: Yes (Life-Threatening, Hospitalization)
  Sender: FDA-Public Use
  Company Number: US-JNJFOC-20110401148

PATIENT
  Age: 39 Year
  Sex: Female

DRUGS (4)
  1. OXYBUTYNIN [Suspect]
     Indication: URINARY INCONTINENCE
     Dosage: WHEN REQUIRED OR AS NEEDED
     Route: 048
  2. DIAZEPAM [Concomitant]
     Route: 065
  3. ACETAMINOPHEN AND HYDROCODONE BITARTRATE [Concomitant]
     Route: 065
  4. THEOPHYLLINE [Concomitant]
     Route: 065

REACTIONS (1)
  - ANAPHYLACTIC REACTION [None]
